FAERS Safety Report 15361727 (Version 1)
Quarter: 2018Q3

REPORT INFORMATION
  Report Type: Spontaneous
  Country: US (occurrence: US)
  Receive Date: 20180907
  Receipt Date: 20180907
  Transmission Date: 20181010
  Serious: Yes (Other)
  Sender: FDA-Public Use
  Company Number: US-PFIZER INC-2018041256

PATIENT
  Age: 62 Year
  Sex: Female
  Weight: 72.57 kg

DRUGS (1)
  1. XELJANZ [Suspect]
     Active Substance: TOFACITINIB CITRATE
     Indication: RHEUMATOID ARTHRITIS
     Dosage: 5 MG, 2X/DAY
     Route: 048

REACTIONS (5)
  - Drug ineffective [Unknown]
  - Chest injury [Unknown]
  - Fall [Unknown]
  - Musculoskeletal chest pain [Unknown]
  - Blood cholesterol increased [Unknown]
